FAERS Safety Report 11212014 (Version 5)
Quarter: 2016Q1

REPORT INFORMATION
  Report Type: Spontaneous
  Country: US (occurrence: US)
  Receive Date: 20150623
  Receipt Date: 20160208
  Transmission Date: 20160525
  Serious: Yes (Hospitalization, Other)
  Sender: FDA-Public Use
  Company Number: US-PFIZER INC-2015204869

PATIENT
  Age: 76 Year
  Sex: Female
  Weight: 48 kg

DRUGS (4)
  1. LYRICA [Suspect]
     Active Substance: PREGABALIN
     Indication: FIBROMYALGIA
     Dosage: 150 MG, DAILY
     Route: 048
     Dates: start: 1998
  2. XARELTO [Suspect]
     Active Substance: RIVAROXABAN
     Indication: PULMONARY ARTERY THROMBOSIS
     Dosage: 1 DF, UNK
     Dates: start: 20150524, end: 20150524
  3. KLONOPIN [Concomitant]
     Active Substance: CLONAZEPAM
     Dosage: ONE 0.5MG TABLET DAILY BEFORE BED
  4. HEPARIN SODIUM. [Suspect]
     Active Substance: HEPARIN SODIUM
     Indication: PULMONARY ARTERY THROMBOSIS
     Dosage: UNK
     Dates: start: 201505, end: 201505

REACTIONS (4)
  - Dehydration [Not Recovered/Not Resolved]
  - Pancreatic carcinoma stage IV [Not Recovered/Not Resolved]
  - Pulmonary artery thrombosis [Unknown]
  - Haemorrhage [Recovered/Resolved]

NARRATIVE: CASE EVENT DATE: 201505
